FAERS Safety Report 16018135 (Version 1)
Quarter: 2019Q1

REPORT INFORMATION
  Report Type: Spontaneous
  Country: US (occurrence: US)
  Receive Date: 20190202
  Receipt Date: 20190202
  Transmission Date: 20190418
  Serious: No
  Sender: FDA-Public Use
  Company Number: None

PATIENT
  Age: 49 Year
  Sex: Female

DRUGS (1)
  1. TRETINOIN CAP 10MG [Suspect]
     Active Substance: TRETINOIN
     Route: 048
     Dates: start: 201808

REACTIONS (5)
  - Dry skin [None]
  - Dry eye [None]
  - Skin exfoliation [None]
  - Eye pain [None]
  - Vision blurred [None]

NARRATIVE: CASE EVENT DATE: 20190202
